FAERS Safety Report 10944126 (Version 1)
Quarter: 2015Q1

REPORT INFORMATION
  Report Type: Spontaneous
  Country: US (occurrence: US)
  Receive Date: 20150323
  Receipt Date: 20150323
  Transmission Date: 20150721
  Serious: No
  Sender: FDA-Public Use
  Company Number: US-TEVA-472338USA

PATIENT
  Age: 66 Year
  Sex: Male

DRUGS (2)
  1. NOREPINEPHRINE [Suspect]
     Active Substance: NOREPINEPHRINE\NOREPINEPHRINE BITARTRATE
  2. VASOPRESSIN. [Concomitant]
     Active Substance: VASOPRESSIN

REACTIONS (2)
  - Incorrect dose administered [Unknown]
  - Blood pressure decreased [Unknown]
